FAERS Safety Report 7608633-6 (Version None)
Quarter: 2011Q3

REPORT INFORMATION
  Report Type: 
  Country: None (occurrence: None)
  Receive Date: 20110714
  Receipt Date: 20110704
  Transmission Date: 20111222
  Serious: Yes (Hospitalization, Other)
  Sender: FDA-Public Use
  Company Number: PHHY2010JP71016

PATIENT
  Age: 67 Year
  Sex: Male

DRUGS (2)
  1. TASIGNA [Suspect]
     Dosage: 400 MG, UNK
     Route: 048
  2. TASIGNA [Suspect]
     Indication: CHRONIC MYELOID LEUKAEMIA
     Dosage: 800 MG, UNK
     Route: 048
     Dates: start: 20100402

REACTIONS (5)
  - CARDIAC FAILURE [None]
  - DILATATION VENTRICULAR [None]
  - SUBILEUS [None]
  - ELECTROCARDIOGRAM QT PROLONGED [None]
  - CARDIAC OUTPUT DECREASED [None]
